FAERS Safety Report 9550651 (Version 1)
Quarter: 2013Q3

REPORT INFORMATION
  Report Type: Spontaneous
  Country: US (occurrence: US)
  Receive Date: 20130924
  Receipt Date: 20130924
  Transmission Date: 20140515
  Serious: No
  Sender: FDA-Public Use
  Company Number: US-SANOFI-AVENTIS-2013SA043583

PATIENT
  Age: 38 Year
  Sex: Female

DRUGS (3)
  1. AUBAGIO [Suspect]
     Indication: MULTIPLE SCLEROSIS
     Dosage: TAKEN FROM-LAST WK OF MAR 2013
     Route: 048
     Dates: start: 201303
  2. PRAVASTATIN [Suspect]
     Indication: BLOOD CHOLESTEROL
     Dosage: TAKEN FROM-LAST WK OF MAR 2013
     Route: 065
     Dates: start: 201303
  3. ALL OTHER THERAPEUTIC PRODUCTS [Concomitant]

REACTIONS (6)
  - Rash [Unknown]
  - Erythema [Not Recovered/Not Resolved]
  - Nodule [Unknown]
  - Drug hypersensitivity [Unknown]
  - Alopecia [Unknown]
  - Drug dose omission [Unknown]
